FAERS Safety Report 6335929-0 (Version None)
Quarter: 2009Q3

REPORT INFORMATION
  Report Type: 
  Country: None (occurrence: None)
  Receive Date: 20090831
  Receipt Date: 20090831
  Transmission Date: 20100115
  Serious: Yes (Hospitalization)
  Sender: FDA-Public Use
  Company Number: None

PATIENT
  Age: 64 Year
  Sex: Female
  Weight: 90.7194 kg

DRUGS (1)
  1. ALVESCO [Suspect]
     Indication: SARCOIDOSIS
     Dosage: 1 PUFF DAILY

REACTIONS (4)
  - DIZZINESS [None]
  - EAR PAIN [None]
  - HEADACHE [None]
  - UNEVALUABLE EVENT [None]
